FAERS Safety Report 10621216 (Version 2)
Quarter: 2015Q4

REPORT INFORMATION
  Report Type: Report from Study
  Country: VE (occurrence: VE)
  Receive Date: 20141203
  Receipt Date: 20151214
  Transmission Date: 20160304
  Serious: Yes (Death, Life-Threatening, Hospitalization, Other)
  Sender: FDA-Public Use
  Company Number: VE-ABBVIE-14K-178-1314694-00

PATIENT
  Age: 81 Year
  Sex: Male
  Weight: 58 kg

DRUGS (2)
  1. HUMIRA [Suspect]
     Active Substance: ADALIMUMAB
     Indication: RHEUMATOID ARTHRITIS
     Route: 058
     Dates: start: 20120417, end: 201408
  2. TRENTAL [Concomitant]
     Active Substance: PENTOXIFYLLINE
     Indication: CARDIOVASCULAR DISORDER
     Route: 048

REACTIONS (6)
  - Myocardial infarction [Recovered/Resolved]
  - Respiratory arrest [Fatal]
  - Pneumonia [Fatal]
  - Renal failure [Unknown]
  - Sepsis [Fatal]
  - Infarction [Recovering/Resolving]

NARRATIVE: CASE EVENT DATE: 201408
